FAERS Safety Report 5831827-7 (Version None)
Quarter: 2008Q3

REPORT INFORMATION
  Report Type: 
  Country: None (occurrence: None)
  Receive Date: 20080804
  Receipt Date: 20080726
  Transmission Date: 20090109
  Serious: Yes (Other)
  Sender: FDA-Public Use
  Company Number: US-JNJFOC-20080706721

PATIENT
  Sex: Male

DRUGS (2)
  1. EXTRA STRENGTH TYLENOL [Suspect]
     Indication: PYREXIA
  2. EXTRA STRENGTH TYLENOL [Suspect]
     Indication: HEADACHE

REACTIONS (1)
  - WITHDRAWAL SYNDROME [None]
